FAERS Safety Report 22189573 (Version 3)
Quarter: 2025Q1

REPORT INFORMATION
  Report Type: Report from Study
  Country: US (occurrence: US)
  Receive Date: 20230410
  Receipt Date: 20250221
  Transmission Date: 20250409
  Serious: No
  Sender: GLAXOSMITHKLINE
  Company Number: US-GLAXOSMITHKLINE-US2023AMR049004

PATIENT
  Sex: Female

DRUGS (2)
  1. NIRAPARIB [Suspect]
     Active Substance: NIRAPARIB
     Indication: Metastases to central nervous system
     Dosage: 200 MG, QD
  2. NIRAPARIB [Suspect]
     Active Substance: NIRAPARIB
     Indication: Metastases to central nervous system
     Dosage: 200 MG, QD

REACTIONS (4)
  - Eczema [Unknown]
  - Vitamin D decreased [Unknown]
  - Product use in unapproved indication [Unknown]
  - Product dose omission issue [Unknown]
